FAERS Safety Report 22984326 (Version 2)
Quarter: 2024Q1

REPORT INFORMATION
  Report Type: Spontaneous
  Country: CA (occurrence: CA)
  Receive Date: 20230926
  Receipt Date: 20240325
  Transmission Date: 20240409
  Serious: Yes (Other)
  Sender: FDA-Public Use
  Company Number: CA-002147023-NVSC2022CA295502

PATIENT
  Sex: Male

DRUGS (13)
  1. ALLOPURINOL [Suspect]
     Active Substance: ALLOPURINOL
     Indication: Hyperuricaemia
     Dosage: 1 DOSAGE FORM, QD
     Route: 048
  2. ALLOPURINOL [Suspect]
     Active Substance: ALLOPURINOL
     Indication: Gouty tophus
  3. ANAKINRA [Suspect]
     Active Substance: ANAKINRA
     Indication: Familial mediterranean fever
     Dosage: UNK
     Route: 058
     Dates: start: 20221022
  4. CLOBETASOL [Suspect]
     Active Substance: CLOBETASOL
     Indication: Product used for unknown indication
     Dosage: UNK
     Route: 061
  5. COLCHICINE [Suspect]
     Active Substance: COLCHICINE
     Dosage: 0.3 MG, TID
     Route: 065
  6. COLCHICINE [Suspect]
     Active Substance: COLCHICINE
     Dosage: 0.6 MG, BID
     Route: 065
  7. COLCHICINE [Suspect]
     Active Substance: COLCHICINE
     Indication: Familial mediterranean fever
     Dosage: 1.8 MG, QD
     Route: 065
  8. COLCHICINE [Suspect]
     Active Substance: COLCHICINE
     Dosage: PRN
     Route: 065
  9. ANAKINRA [Concomitant]
     Active Substance: ANAKINRA
     Indication: Product used for unknown indication
     Dosage: UNK
     Route: 065
     Dates: start: 202210
  10. BETADERM [Concomitant]
     Active Substance: BETAMETHASONE VALERATE
     Indication: Product used for unknown indication
     Route: 061
  11. BETAMETHASONE VALERATE [Concomitant]
     Active Substance: BETAMETHASONE VALERATE
     Indication: Product used for unknown indication
     Dosage: UNK
     Route: 061
  12. ULORIC [Concomitant]
     Active Substance: FEBUXOSTAT
     Indication: Product used for unknown indication
     Dosage: UNK
     Route: 065
     Dates: end: 202209
  13. VITAMIN D [Concomitant]
     Active Substance: VITAMIN D NOS
     Indication: Product used for unknown indication
     Dosage: 1 DOSAGE FORM, QW (STRENGTH: 5000)
     Route: 065

REACTIONS (20)
  - Retinal dystrophy [Unknown]
  - Retinal cyst [Unknown]
  - Abdominal pain [Unknown]
  - Retinal drusen [Unknown]
  - Drug hypersensitivity [Not Recovered/Not Resolved]
  - Fixed eruption [Unknown]
  - Penile dermatitis [Recovering/Resolving]
  - Rash erythematous [Recovering/Resolving]
  - Rash pruritic [Recovering/Resolving]
  - Penile discomfort [Unknown]
  - Hyperuricaemia [Unknown]
  - Gouty tophus [Unknown]
  - Injection site bruising [Unknown]
  - Diarrhoea [Unknown]
  - Familial mediterranean fever [Not Recovered/Not Resolved]
  - Condition aggravated [Not Recovered/Not Resolved]
  - Constipation [Unknown]
  - Pyrexia [Unknown]
  - Arthralgia [Unknown]
  - Drug ineffective [Unknown]

NARRATIVE: CASE EVENT DATE: 20220101
